FAERS Safety Report 13917275 (Version 4)
Quarter: 2018Q2

REPORT INFORMATION
  Report Type: Report from Study
  Country: US (occurrence: US)
  Receive Date: 20170829
  Receipt Date: 20180607
  Transmission Date: 20180711
  Serious: Yes (Death, Hospitalization, Other)
  Sender: FDA-Public Use
  Company Number: US-BAYER-2017-159256

PATIENT
  Age: 68 Year
  Sex: Male

DRUGS (5)
  1. OXYCODONE [Concomitant]
     Active Substance: OXYCODONE
     Dosage: UNK
  2. INSULIN [Concomitant]
     Active Substance: INSULIN NOS
  3. STIVARGA [Suspect]
     Active Substance: REGORAFENIB
     Indication: METASTASES TO RETROPERITONEUM
     Dosage: 120 MG EVERY DAY FOR 21 DAYS ON THEN OFF FOR 7 DAYS
     Route: 048
     Dates: start: 201610, end: 20170818
  4. STIVARGA [Suspect]
     Active Substance: REGORAFENIB
     Indication: METASTASES TO PERITONEUM
  5. BENICAR [Concomitant]
     Active Substance: OLMESARTAN MEDOXOMIL

REACTIONS (12)
  - Dizziness [Not Recovered/Not Resolved]
  - Weight decreased [Not Recovered/Not Resolved]
  - General physical health deterioration [None]
  - Off label use [None]
  - Oral pain [None]
  - Fatigue [Not Recovered/Not Resolved]
  - Product use in unapproved indication [None]
  - Asthenia [Not Recovered/Not Resolved]
  - Abdominal pain upper [Not Recovered/Not Resolved]
  - Colorectal cancer metastatic [Fatal]
  - Vomiting [Not Recovered/Not Resolved]
  - Drug ineffective [None]

NARRATIVE: CASE EVENT DATE: 201708
